FAERS Safety Report 4938742-1 (Version None)
Quarter: 2006Q1

REPORT INFORMATION
  Report Type: 
  Country: None (occurrence: None)
  Receive Date: 20060309
  Receipt Date: 20060303
  Transmission Date: 20060701
  Serious: Yes (Hospitalization)
  Sender: FDA-Public Use
  Company Number: DE-BOEHRINGER INGELHEIM PHARMACEUTICALS, INC.-2006-BP-02658YA

PATIENT
  Sex: Male
  Weight: 91 kg

DRUGS (11)
  1. OMNIC CAPSULES [Suspect]
     Indication: BENIGN PROSTATIC HYPERPLASIA
     Route: 048
     Dates: start: 20051205, end: 20051215
  2. ACC [Concomitant]
     Dates: start: 20051117, end: 20051202
  3. SORTIS [Concomitant]
     Dates: start: 19980101, end: 20051215
  4. BISOPUREN [Concomitant]
     Dates: start: 19980101
  5. ASPIRIN [Concomitant]
     Dates: start: 19980101, end: 20051216
  6. ARCOXIA [Concomitant]
     Dates: start: 19950101, end: 20051001
  7. MOLSIDOMIN [Concomitant]
     Dates: start: 19980101
  8. NITRANGIN [Concomitant]
     Dates: start: 19980101
  9. AZOPT [Concomitant]
     Dates: start: 19950101
  10. XALATAN [Concomitant]
     Dates: start: 20030101
  11. ASCORBIC ACID [Concomitant]
     Dates: start: 19980101, end: 20051215

REACTIONS (4)
  - CHOLANGITIS [None]
  - HEPATIC ENZYME ABNORMAL [None]
  - HEPATITIS [None]
  - HEPATOCELLULAR DAMAGE [None]
